FAERS Safety Report 5721764-0 (Version None)
Quarter: 2008Q2

REPORT INFORMATION
  Report Type: 
  Country: None (occurrence: None)
  Receive Date: 20080429
  Receipt Date: 20070411
  Transmission Date: 20081010
  Serious: No
  Sender: FDA-Public Use
  Company Number: US-ASTRAZENECA-2007UW07100

PATIENT
  Age: 68 Year
  Sex: Female
  Weight: 68 kg

DRUGS (3)
  1. NEXIUM [Suspect]
     Indication: HIATUS HERNIA
     Route: 048
     Dates: start: 20060101
  2. ASPIRIN [Concomitant]
  3. MYACALCIN NASAL SPRAY [Concomitant]

REACTIONS (2)
  - BREAST SWELLING [None]
  - WEIGHT INCREASED [None]
